FAERS Safety Report 7262638-6 (Version None)
Quarter: 2011Q1

REPORT INFORMATION
  Report Type: 
  Country: None (occurrence: None)
  Receive Date: 20110130
  Receipt Date: 20100922
  Transmission Date: 20110831
  Serious: No
  Sender: FDA-Public Use
  Company Number: US-ABBOTT-10P-163-0673488-00

PATIENT
  Sex: Female
  Weight: 102.15 kg

DRUGS (5)
  1. HUMIRA [Suspect]
     Dates: start: 20100909
  2. HUMIRA [Suspect]
     Dosage: 80 MILLIGRAM LOADING DOSE
     Dates: start: 20100827, end: 20100827
  3. BUPROPION HYDROCHLORIDE [Concomitant]
     Indication: DEPRESSION
  4. FLUOXETINE HYDROCHLORIDE [Concomitant]
     Indication: DEPRESSION
  5. HUMIRA [Suspect]
     Indication: COLITIS ULCERATIVE
     Dosage: 160 MILLIGRAM LOADING DOSE
     Dates: start: 20100813, end: 20100813

REACTIONS (1)
  - HAEMATOCHEZIA [None]
